FAERS Safety Report 8309355-9 (Version None)
Quarter: 2012Q2

REPORT INFORMATION
  Report Type: 
  Country: None (occurrence: None)
  Receive Date: 20120425
  Receipt Date: 20120414
  Transmission Date: 20120825
  Serious: Yes (Other)
  Sender: FDA-Public Use
  Company Number: DE-PAR PHARMACEUTICAL, INC-2012SCPR004327

PATIENT

DRUGS (4)
  1. LEVETIRACETAM [Suspect]
     Dosage: 2000 MG, / DAY
     Route: 064
  2. LAMOTRGINE [Suspect]
     Dosage: 1000 MG, / DAY
     Route: 064
  3. LEVETIRACETAM [Suspect]
     Indication: EPILEPSY
     Dosage: UNK, UNKNOWN
     Route: 064
  4. LAMOTRGINE [Suspect]
     Indication: EPILEPSY
     Dosage: UNK, UNKNOWN
     Route: 064

REACTIONS (4)
  - BRADYCARDIA NEONATAL [None]
  - OXYGEN SATURATION DECREASED [None]
  - FOETAL EXPOSURE DURING PREGNANCY [None]
  - EXPOSURE DURING BREAST FEEDING [None]
